FAERS Safety Report 9216452 (Version 1)
Quarter: 2013Q2

REPORT INFORMATION
  Report Type: Spontaneous
  Country: DK (occurrence: IT)
  Receive Date: 20130408
  Receipt Date: 20130408
  Transmission Date: 20140414
  Serious: Yes (Hospitalization)
  Sender: FDA-Public Use
  Company Number: IT-FRI-1000044074

PATIENT
  Sex: Female

DRUGS (1)
  1. CITALOPRAM [Suspect]

REACTIONS (1)
  - Tachyarrhythmia [Recovered/Resolved]
